FAERS Safety Report 8882678 (Version 3)
Quarter: 2012Q4

REPORT INFORMATION
  Report Type: 
  Country: SG (occurrence: SG)
  Receive Date: 20121105
  Receipt Date: 20121113
  Transmission Date: 20130627
  Serious: Yes (Death, Other)
  Sender: FDA-Public Use
  Company Number: SG-JNJFOC-20121016094

PATIENT

DRUGS (67)
  1. DOXORUBICIN [Suspect]
     Indication: ACUTE LYMPHOCYTIC LEUKAEMIA
     Dosage: reinduction phase  protocol III regimen (for SR and IR sub-group patients) on days 1 and 8
     Route: 042
  2. DOXORUBICIN [Suspect]
     Indication: ACUTE LYMPHOCYTIC LEUKAEMIA
     Dosage: reinduction phase  protocol II regimen (for HR sub-group patients) on days 1, 8 and 15
     Route: 042
  3. DOXORUBICIN [Suspect]
     Indication: ACUTE LYMPHOCYTIC LEUKAEMIA
     Dosage: reinduction phase  protocol III regimen (for SR and IR sub-group patients) on days 1 and 8
     Route: 042
  4. DOXORUBICIN [Suspect]
     Indication: ACUTE LYMPHOCYTIC LEUKAEMIA
     Dosage: reinduction phase  protocol II regimen (for HR sub-group patients) on days 1, 8 and 15
     Route: 042
  5. PREDNISOLONE [Suspect]
     Indication: ACUTE LYMPHOCYTIC LEUKAEMIA
     Dosage: induction phase of treatment, three times a day
     Route: 048
  6. METHOTREXATE [Suspect]
     Indication: ACUTE LYMPHOCYTIC LEUKAEMIA
     Dosage: Reinduction phase, in protocol III regimen (SR + IR patients) on days 1, 17 and 24
     Route: 037
  7. METHOTREXATE [Suspect]
     Indication: ACUTE LYMPHOCYTIC LEUKAEMIA
     Dosage: induction phase of treatment, in protocol 1 phase 1^a regimen (SR and IR) on days 8, 15, 22 and 33
     Route: 037
  8. METHOTREXATE [Suspect]
     Indication: ACUTE LYMPHOCYTIC LEUKAEMIA
     Dosage: Interim maintenance regimen (IR patients) on  day 15
     Route: 037
  9. METHOTREXATE [Suspect]
     Indication: ACUTE LYMPHOCYTIC LEUKAEMIA
     Dosage: Consolidation phase, in protocol M5g regimen (IR + HR patients) on days 8, 22,36 and 50
     Route: 037
  10. METHOTREXATE [Suspect]
     Indication: ACUTE LYMPHOCYTIC LEUKAEMIA
     Dosage: Consolidation phase, in protocol M2g regimen (SR patients) on days 8, 22,36 and 50
     Route: 037
  11. METHOTREXATE [Suspect]
     Indication: ACUTE LYMPHOCYTIC LEUKAEMIA
     Dosage: induction phase of treatment, in protocol 1, phase 1b regimen (all patients) on days 45 + 59
     Route: 037
  12. METHOTREXATE [Suspect]
     Indication: ACUTE LYMPHOCYTIC LEUKAEMIA
     Dosage: induction phase of treatment, on day 1
     Route: 037
  13. METHOTREXATE [Suspect]
     Indication: ACUTE LYMPHOCYTIC LEUKAEMIA
     Dosage: Reinduction phase, in protocol II regimen (HR only patients) on days 1, 8, 24 + 31
     Route: 037
  14. METHOTREXATE [Suspect]
     Indication: ACUTE LYMPHOCYTIC LEUKAEMIA
     Dosage: maintenance regimen (HR 4 blocks) on day 1
     Route: 037
  15. METHOTREXATE [Suspect]
     Indication: ACUTE LYMPHOCYTIC LEUKAEMIA
     Dosage: maintenance regimen (SR 6 blocks + IR 5 blocks) on  day 71
     Route: 037
  16. METHOTREXATE [Suspect]
     Indication: ACUTE LYMPHOCYTIC LEUKAEMIA
     Dosage: Interim maintenance regimen (HR patients) on  days 8, 22, 26 + 50
     Route: 037
  17. METHOTREXATE [Suspect]
     Indication: ACUTE LYMPHOCYTIC LEUKAEMIA
     Dosage: induction phase of treatment, in protocol 1 phase 1a regimen (HR sub-group) on days 8, 15, 22 and 33
     Route: 037
  18. METHOTREXATE [Suspect]
     Indication: ACUTE LYMPHOCYTIC LEUKAEMIA
     Dosage: Interim maintenance regimen (SR patients) on  days 29 + 36
     Route: 037
  19. METHOTREXATE [Suspect]
     Indication: ACUTE LYMPHOCYTIC LEUKAEMIA
     Dosage: Interim maintenance Regimen: HR patients on days 1,8,15,22,29,36,43 + 50
     Route: 042
  20. METHOTREXATE [Suspect]
     Indication: ACUTE LYMPHOCYTIC LEUKAEMIA
     Dosage: 5 g/m2 in consolidation phase, protocol M5g regimen (IR and HR)
     Route: 042
  21. METHOTREXATE [Suspect]
     Indication: ACUTE LYMPHOCYTIC LEUKAEMIA
     Dosage: consolidation phase of treatment, protocol M2g regimen (SR patients) 2 g/m2 on days 8, 22, 36
     Route: 042
  22. DEXAMETHASONE [Suspect]
     Indication: ACUTE LYMPHOCYTIC LEUKAEMIA
     Dosage: induction phase, protocol I phase I a regimen (SR and IR only)
     Route: 048
  23. DEXAMETHASONE [Suspect]
     Indication: ACUTE LYMPHOCYTIC LEUKAEMIA
     Dosage: maintenance regimen (SR 6 blocks and IR 5 blocks)
     Route: 048
  24. DEXAMETHASONE [Suspect]
     Indication: ACUTE LYMPHOCYTIC LEUKAEMIA
     Dosage: Interim maintenance (IR patients) on days 15 to 21
     Route: 048
  25. DEXAMETHASONE [Suspect]
     Indication: ACUTE LYMPHOCYTIC LEUKAEMIA
     Dosage: Interim maintenance (SR patients) on days 29 to 35
     Route: 048
  26. DEXAMETHASONE [Suspect]
     Indication: ACUTE LYMPHOCYTIC LEUKAEMIA
     Dosage: Reinduction phase, protocol II regimen (HR patients) on days 1 to 21
     Route: 048
  27. DEXAMETHASONE [Suspect]
     Indication: ACUTE LYMPHOCYTIC LEUKAEMIA
     Dosage: Reinduction phase, protocol III regimen (SR and IR)
     Route: 048
  28. DEXAMETHASONE [Suspect]
     Indication: ACUTE LYMPHOCYTIC LEUKAEMIA
     Dosage: induction phase, protocol I phase Ia regimen (HR patients) on days 8 to 35
     Route: 048
  29. DEXAMETHASONE [Suspect]
     Indication: ACUTE LYMPHOCYTIC LEUKAEMIA
     Dosage: maintenance dose; HR only 4 blocks: 1-1, 29-35, 57-63
     Route: 048
  30. VINCRISTINE [Suspect]
     Indication: ACUTE LYMPHOCYTIC LEUKAEMIA
     Dosage: Max dose 2mg/m2; Interim maintenance regimen (HR) on days 1,8,15,22,29,36,43
     Route: 042
  31. VINCRISTINE [Suspect]
     Indication: ACUTE LYMPHOCYTIC LEUKAEMIA
     Dosage: Max dose 2mg/m2; maintenance regimen (HR 4 blocks) on days 1, 29, 57
     Route: 042
  32. VINCRISTINE [Suspect]
     Indication: ACUTE LYMPHOCYTIC LEUKAEMIA
     Dosage: Max dose 2mg/m2; maintenance regimen (SR 6 blocks  + IR 5 blocks)
     Route: 042
  33. VINCRISTINE [Suspect]
     Indication: ACUTE LYMPHOCYTIC LEUKAEMIA
     Dosage: Max dose 2mg/m2; Interim maintenance regimen (IR) on day 15
     Route: 042
  34. VINCRISTINE [Suspect]
     Indication: ACUTE LYMPHOCYTIC LEUKAEMIA
     Dosage: Max dose 2mg/m2; Interim maintenance regimen (SR pts) on days 29
     Route: 042
  35. VINCRISTINE [Suspect]
     Indication: ACUTE LYMPHOCYTIC LEUKAEMIA
     Dosage: 1.5mg/m2; Max dose 2mg/m2; Reinduction phase, protocol II regimen (HR pts) on days 1, 8 + 15
     Route: 042
  36. VINCRISTINE [Suspect]
     Indication: ACUTE LYMPHOCYTIC LEUKAEMIA
     Dosage: Max dose 2mg/m2; Reinduction phase, protocol III regimen (SR  + IR) on day 1 and 8
     Route: 042
  37. VINCRISTINE [Suspect]
     Indication: ACUTE LYMPHOCYTIC LEUKAEMIA
     Dosage: Max dose 2mg/m2; induction phase, protocol I phase Ia regimen (HR) on day 8,15,22
     Route: 042
  38. VINCRISTINE [Suspect]
     Indication: ACUTE LYMPHOCYTIC LEUKAEMIA
     Dosage: max dose of 2mg/m2; induction phase, protocol I phase Ia regimen (SR + IR)
     Route: 042
  39. ASPARAGINASE [Suspect]
     Indication: ACUTE LYMPHOCYTIC LEUKAEMIA
     Dosage: 15,000U/m3 Interim maintenance regimen (HR) on days 2,9,16,23,30,37,44, 51
     Route: 030
  40. ASPARAGINASE [Suspect]
     Indication: ACUTE LYMPHOCYTIC LEUKAEMIA
     Dosage: 10,000U/m3 per day Re-induction phase, protocol II regimen (HR) on days 3,6,9,12,15, 18
     Route: 030
  41. ASPARAGINASE [Suspect]
     Indication: ACUTE LYMPHOCYTIC LEUKAEMIA
     Dosage: 10,000U/m3 per day Re-induction phase, protocol III regimen (SR and IR)
     Route: 030
  42. ASPARAGINASE [Suspect]
     Indication: ACUTE LYMPHOCYTIC LEUKAEMIA
     Dosage: 7500U/m3 per dose induction phase, protocol I phase Ia regimen (HR pts)
     Route: 030
  43. ASPARAGINASE [Suspect]
     Indication: ACUTE LYMPHOCYTIC LEUKAEMIA
     Dosage: 7500U/m3 induction phase, protocol I phase I^a regimen (SR and IR)
     Route: 030
  44. DAUNORUBICIN [Suspect]
     Indication: ACUTE LYMPHOCYTIC LEUKAEMIA
     Dosage: induction phase, Protocol 1 phase Ia (HR) on days 8, 15, 22, 29
     Route: 042
  45. CYCLOPHOSPHAMIDE [Suspect]
     Indication: ACUTE LYMPHOCYTIC LEUKAEMIA
     Dosage: induction phase, Protocol 1 phase Ib all patients on days 36 and 64
     Route: 042
  46. CYCLOPHOSPHAMIDE [Suspect]
     Indication: ACUTE LYMPHOCYTIC LEUKAEMIA
     Dosage: Re-induction phase, Protocol III regimen (SR and IR)
     Route: 042
  47. CYCLOPHOSPHAMIDE [Suspect]
     Indication: ACUTE LYMPHOCYTIC LEUKAEMIA
     Dosage: Re-induction phase, Protocol II regimen (HR) on day 22
     Route: 042
  48. CYTARABINE [Suspect]
     Indication: ACUTE LYMPHOCYTIC LEUKAEMIA
     Dosage: induction phase, Protocol 1 phase Ib (all pts) on days 38-41, 45-48, 52-55, 59-62
     Route: 042
  49. CYTARABINE [Suspect]
     Indication: ACUTE LYMPHOCYTIC LEUKAEMIA
     Dosage: Re-induction phase, Protocol II regimen (HR pts) on days 24-27, 31-34
     Route: 042
  50. CYTARABINE [Suspect]
     Indication: ACUTE LYMPHOCYTIC LEUKAEMIA
     Dosage: Re-induction phase, Protocol III regimen (SR
     Route: 042
  51. CYTARABINE [Suspect]
     Indication: ACUTE LYMPHOCYTIC LEUKAEMIA
     Dosage: Re-induction phase, Protocol III regimen (SR + IR pts) on days 17-20, 24-27
     Route: 058
  52. CYTARABINE [Suspect]
     Indication: ACUTE LYMPHOCYTIC LEUKAEMIA
     Dosage: Re-induction phase, Protocol II regimen (HR pts) on days 24-27, 31-34
     Route: 058
  53. CYTARABINE [Suspect]
     Indication: ACUTE LYMPHOCYTIC LEUKAEMIA
     Dosage: induction phase, Protocol 1 phase Ib (all pts) on days 38-41, 45-48, 52-55, 59-62
     Route: 058
  54. MERCAPTOPURINE [Suspect]
     Indication: ACUTE LYMPHOCYTIC LEUKAEMIA
     Dosage: induction phase, Protocol 1 phase Ib (all pts) on days 36-64
     Route: 048
  55. MERCAPTOPURINE [Suspect]
     Indication: ACUTE LYMPHOCYTIC LEUKAEMIA
     Dosage: 50 to 75 mg/m2 once a day, maintenance regimen, for HR patients 4 blocks on days 1-84
     Route: 048
  56. MERCAPTOPURINE [Suspect]
     Indication: ACUTE LYMPHOCYTIC LEUKAEMIA
     Dosage: maintenance regimen, for SR 6 blocks + IR 5 blocks on days 1-84
     Route: 048
  57. MERCAPTOPURINE [Suspect]
     Indication: ACUTE LYMPHOCYTIC LEUKAEMIA
     Dosage: Interim maintenance, for IR patients on days 1-28
     Route: 048
  58. MERCAPTOPURINE [Suspect]
     Indication: ACUTE LYMPHOCYTIC LEUKAEMIA
     Dosage: Interim maintenance, for SR patients on days 1-56
     Route: 048
  59. MERCAPTOPURINE [Suspect]
     Indication: ACUTE LYMPHOCYTIC LEUKAEMIA
     Dosage: Consolidation phase, Protocol M5g  regimen (IR + HR pts) on days 1-56
     Route: 048
  60. MERCAPTOPURINE [Suspect]
     Indication: ACUTE LYMPHOCYTIC LEUKAEMIA
     Dosage: Consolidation phase, Protocol M2g  regimen (SR pts) on days 1-56
     Route: 048
  61. THIOGUANINE [Suspect]
     Indication: ACUTE LYMPHOCYTIC LEUKAEMIA
     Dosage: Re-induction phase, Protocol III regimen (SR and IR)
     Route: 048
  62. THIOGUANINE [Suspect]
     Indication: ACUTE LYMPHOCYTIC LEUKAEMIA
     Dosage: Re-induction phase, Protocol II regimen (HR) on days 22-36
     Route: 048
  63. METHOTREXATE [Suspect]
     Indication: ACUTE LYMPHOCYTIC LEUKAEMIA
     Dosage: interim maintenance regimen SR patients on days 1,8,15,22,29,36,43 + 50
     Route: 048
  64. METHOTREXATE [Suspect]
     Indication: ACUTE LYMPHOCYTIC LEUKAEMIA
     Dosage: interim maintenance regimen IR patients on days 1,8,15 + 22
     Route: 048
  65. METHOTREXATE [Suspect]
     Indication: ACUTE LYMPHOCYTIC LEUKAEMIA
     Dosage: maintenance regimen SR 6 blocks + IR 5 blocks on days 1,8,15,22,29,36,43,50,57,64,71 + 78
     Route: 048
  66. METHOTREXATE [Suspect]
     Indication: ACUTE LYMPHOCYTIC LEUKAEMIA
     Dosage: maintenance regimen HR 4 blocks on days 1,8,15,22,29,36,43,50,57,64,71 + 78
     Route: 048
  67. RADIOTHERAPY [Suspect]
     Indication: ACUTE LYMPHOCYTIC LEUKAEMIA
     Dosage: 18Gy CNS3 disease patients, 12 Gy for patients with T-cell ALL + patients in HR arm
     Route: 065

REACTIONS (7)
  - Gastrointestinal haemorrhage [Fatal]
  - Haemorrhage intracranial [Fatal]
  - Sepsis [Fatal]
  - Neutropenic sepsis [Fatal]
  - Death [Fatal]
  - Acute lymphocytic leukaemia recurrent [Unknown]
  - Off label use [Unknown]
